FAERS Safety Report 6469401-4 (Version None)
Quarter: 2009Q4

REPORT INFORMATION
  Report Type: 
  Country: None (occurrence: None)
  Receive Date: 20091203
  Receipt Date: 20080221
  Transmission Date: 20100525
  Serious: Yes (Death, Life-Threatening)
  Sender: FDA-Public Use
  Company Number: FR-LLY01-FR200709006571

PATIENT
  Age: 61 Year
  Sex: Male
  Weight: 115 kg

DRUGS (9)
  1. CIALIS [Suspect]
     Indication: ERECTILE DYSFUNCTION
     Dosage: 20 MG, UNK
     Route: 048
  2. SINTROM [Concomitant]
     Indication: ATRIAL FIBRILLATION
     Dosage: UNK, DAILY (1/D)
     Route: 048
     Dates: start: 20040627
  3. DIGOXIN [Concomitant]
     Indication: ATRIAL FIBRILLATION
     Dosage: 1 D/F, DAILY (1/D)
     Route: 048
     Dates: start: 20040627
  4. LERCANIDIPINE [Concomitant]
     Indication: HYPERTENSION
     Dosage: 20 MG, DAILY (1/D)
     Route: 048
     Dates: start: 20040627
  5. TAREG [Concomitant]
     Indication: HYPERTENSION
     Dosage: 160 MG, DAILY (1/D)
     Route: 048
     Dates: start: 20040627
  6. METFORMIN HCL [Concomitant]
     Indication: TYPE 2 DIABETES MELLITUS
     Dosage: 850 MG, 2/D
     Route: 048
     Dates: start: 20070629
  7. DIAMICRON [Concomitant]
     Indication: TYPE 2 DIABETES MELLITUS
     Dosage: 30 MG, 3/D
     Route: 048
     Dates: start: 20070629
  8. ALLOPURINOL [Concomitant]
     Indication: GOUT
     Dosage: 200 MG, DAILY (1/D)
     Route: 048
     Dates: start: 20040627
  9. EFFERALGAN [Concomitant]
     Indication: BACK PAIN
     Dosage: UNK, AS NEEDED
     Route: 048
     Dates: start: 20040627

REACTIONS (2)
  - HAEMATEMESIS [None]
  - SHOCK HAEMORRHAGIC [None]
